FAERS Safety Report 7577734 (Version 10)
Quarter: 2014Q1

REPORT INFORMATION
  Report Type: Report from Study
  Country: CA (occurrence: CA)
  Receive Date: 20100909
  Receipt Date: 20140205
  Transmission Date: 20141002
  Serious: Yes (Death, Other)
  Sender: FDA-Public Use
  Company Number: PHHY2010CA56173

PATIENT
  Sex: Female

DRUGS (5)
  1. SANDOSTATIN [Suspect]
     Indication: NEUROENDOCRINE TUMOUR
     Dosage: UNK UKN, UNK
     Dates: start: 20100819
  2. SANDOSTATIN LAR [Suspect]
     Indication: NEUROENDOCRINE TUMOUR
     Dosage: 30 MG, EVERY 4 WEEKS
     Route: 030
     Dates: start: 20100826
  3. SANDOSTATIN LAR [Suspect]
     Dosage: 60 MG, EVERY 4 WEEKS
     Route: 030
     Dates: end: 20140108
  4. CRESTOR [Concomitant]
     Dosage: 5 MG, UNK
  5. PANTOLOC [Concomitant]
     Dosage: 30 MG, UNK

REACTIONS (9)
  - Death [Fatal]
  - Fluid retention [Unknown]
  - Local swelling [Unknown]
  - Blood cholesterol increased [Unknown]
  - Abdominal discomfort [Unknown]
  - Feeding tube complication [Unknown]
  - Injection site pain [Recovered/Resolved]
  - Flatulence [Unknown]
  - Diarrhoea [Unknown]
